FAERS Safety Report 7768125-0 (Version None)
Quarter: 2011Q3

REPORT INFORMATION
  Report Type: 
  Country: None (occurrence: None)
  Receive Date: 20110919
  Receipt Date: 20110908
  Transmission Date: 20111222
  Serious: Yes (Other)
  Sender: FDA-Public Use
  Company Number: 2011-01044

PATIENT
  Age: 74 Year
  Sex: Female

DRUGS (1)
  1. AMLODIPINE BESYLATE [Suspect]
     Indication: HYPERTENSION
     Dosage: 5 MG (5 MG, 1 IN 1 D), PER ORAL
     Route: 048

REACTIONS (4)
  - CHOKING [None]
  - FOREIGN BODY [None]
  - COUGH [None]
  - PRODUCT SOLUBILITY ABNORMAL [None]
